FAERS Safety Report 9442415 (Version 1)
Quarter: 2013Q3

REPORT INFORMATION
  Report Type: Spontaneous
  Country: US (occurrence: US)
  Receive Date: 20130806
  Receipt Date: 20130806
  Transmission Date: 20140515
  Serious: No
  Sender: FDA-Public Use
  Company Number: US-GLAXOSMITHKLINE-A1022797A

PATIENT
  Age: 54 Year
  Sex: Male

DRUGS (8)
  1. ADVAIR [Suspect]
     Indication: ASTHMA
     Dosage: 2PUFF TWICE PER DAY
     Route: 055
     Dates: start: 201303, end: 20130429
  2. POTASSIUM [Concomitant]
  3. RED YEAST RICE [Concomitant]
  4. FISH OIL [Concomitant]
  5. VITAMIN D3 [Concomitant]
  6. BLOOD PRESSURE MEDICATION [Concomitant]
  7. ACID REFLUX MED. [Concomitant]
  8. CHOLESTEROL [Concomitant]

REACTIONS (3)
  - Dry mouth [Recovered/Resolved]
  - Increased viscosity of bronchial secretion [Unknown]
  - Product quality issue [Unknown]
